FAERS Safety Report 6516736-2 (Version None)
Quarter: 2009Q4

REPORT INFORMATION
  Report Type: 
  Country: None (occurrence: None)
  Receive Date: 20091215
  Receipt Date: 20090112
  Transmission Date: 20100525
  Serious: Yes (Other)
  Sender: FDA-Public Use
  Company Number: 09-000054

PATIENT
  Age: 63 Year
  Sex: Female
  Weight: 72.6 kg

DRUGS (7)
  1. FEMHRT [Suspect]
     Indication: HOT FLUSH
     Dosage: 0.5 MG/2.5 MCG, ORAL
     Route: 048
     Dates: start: 20060101
  2. FEMHRT [Suspect]
     Indication: HOT FLUSH
     Dates: start: 20030101, end: 20060101
  3. METOPROLOL (METOPROLOL) [Concomitant]
  4. LISINOPRIL [Concomitant]
  5. LIPITOR [Concomitant]
  6. METFORMIN HCL [Concomitant]
  7. ASPIRIN [Concomitant]

REACTIONS (2)
  - ALOPECIA [None]
  - MYOCARDIAL INFARCTION [None]
